FAERS Safety Report 11114903 (Version 1)
Quarter: 2015Q2

REPORT INFORMATION
  Report Type: Spontaneous
  Country: US (occurrence: None)
  Receive Date: 20150513
  Receipt Date: 20150513
  Transmission Date: 20150821
  Serious: Yes (Death)
  Sender: FDA-Public Use
  Company Number: US-H14001-15-00670

PATIENT
  Age: 58 Year
  Sex: Female

DRUGS (4)
  1. CHEMOTHERAPY (CHEMOTHERAPEUTICS) (UNKNOWN) [Suspect]
     Active Substance: UNSPECIFIED INGREDIENT
     Indication: BREAST CANCER
     Dosage: (UNKNOWN), UNKNOWN
  2. GRANISETRON (GRANISETRON) [Suspect]
     Active Substance: GRANISETRON
     Indication: PROPHYLAXIS OF NAUSEA AND VOMITING
     Dosage: (UNKNOWN), UNKNOWN
  3. GRANISETRON (GRANISETRON) [Suspect]
     Active Substance: GRANISETRON
     Dosage: (UNKNOWN), UNKNOWN
  4. SERTRALINE [Suspect]
     Active Substance: SERTRALINE HYDROCHLORIDE
     Indication: PRODUCT USED FOR UNKNOWN INDICATION
     Dosage: (UNKNOWN), UNKNOWN

REACTIONS (12)
  - Hyperreflexia [None]
  - Delirium [None]
  - Eye movement disorder [None]
  - Posterior reversible encephalopathy syndrome [None]
  - Brain oedema [None]
  - Drug interaction [None]
  - Tremor [None]
  - Serotonin syndrome [None]
  - Blood pressure fluctuation [None]
  - Mental status changes [None]
  - Muscle rigidity [None]
  - Dyskinesia [None]
